FAERS Safety Report 5639550-9 (Version None)
Quarter: 2008Q1

REPORT INFORMATION
  Report Type: 
  Country: None (occurrence: None)
  Receive Date: 20080226
  Receipt Date: 20080220
  Transmission Date: 20080703
  Serious: Yes (Hospitalization)
  Sender: FDA-Public Use
  Company Number: US-MERCK-0802USA04623

PATIENT
  Age: 73 Year
  Sex: Female

DRUGS (8)
  1. FOSAMAX PLUS D [Suspect]
     Indication: OSTEOPOROSIS
     Route: 048
     Dates: start: 20071101, end: 20080201
  2. ARIMIDEX [Concomitant]
     Route: 065
  3. LIPITOR [Concomitant]
     Route: 065
  4. SYNTHROID [Concomitant]
     Route: 065
  5. DETROL [Concomitant]
     Route: 065
  6. LISINOPRIL [Concomitant]
     Route: 048
  7. GLUMETZA [Concomitant]
     Route: 065
  8. CORGARD [Concomitant]
     Route: 065

REACTIONS (2)
  - COLITIS [None]
  - DIVERTICULITIS [None]
